FAERS Safety Report 4494532-8 (Version None)
Quarter: 2004Q4

REPORT INFORMATION
  Report Type: 
  Country: None (occurrence: None)
  Receive Date: 20041103
  Receipt Date: 20041020
  Transmission Date: 20050328
  Serious: Yes (Hospitalization)
  Sender: FDA-Public Use
  Company Number: FR-2004-030267

PATIENT
  Age: 43 Year
  Sex: Male

DRUGS (8)
  1. BETAFERON(INTERFERON BETA - 1B) INJECTION, 250UG [Suspect]
     Indication: MULTIPLE SCLEROSIS
     Dosage: 8 MIU, EVERY 2 D, SUBCUTANEOUS
     Route: 058
     Dates: start: 20030801, end: 20040720
  2. ANAFRANIL [Concomitant]
  3. VALPROATE SODIUM [Concomitant]
  4. SULFARLEM S 25 (ANETHOLE TRITHIONE) [Concomitant]
  5. XATRAL - SLOW RELEASE [Concomitant]
  6. MIDODRINE HCL [Concomitant]
  7. STILNOX (ZOLPIDEM) [Concomitant]
  8. DOLIPRANE [Concomitant]

REACTIONS (2)
  - MULTIPLE SCLEROSIS RELAPSE [None]
  - PANCYTOPENIA [None]
